FAERS Safety Report 4943979-1 (Version None)
Quarter: 2006Q1

REPORT INFORMATION
  Report Type: 
  Country: None (occurrence: None)
  Receive Date: 20060313
  Receipt Date: 20060313
  Transmission Date: 20060701
  Serious: No
  Sender: FDA-Public Use
  Company Number: None

PATIENT
  Age: 48 Year
  Sex: Female
  Weight: 78.0187 kg

DRUGS (2)
  1. CLOZAPINE [Suspect]
     Indication: PSYCHOTIC DISORDER
     Dosage: 500 MG PO QD
     Route: 048
  2. LEVAQUIN [Suspect]
     Indication: PNEUMONIA
     Dosage: 500MG PO
     Route: 048

REACTIONS (2)
  - DRUG LEVEL INCREASED [None]
  - RESPIRATORY TRACT INFECTION [None]
